FAERS Safety Report 11517666 (Version 6)
Quarter: 2017Q4

REPORT INFORMATION
  Report Type: Spontaneous
  Country: US (occurrence: US)
  Receive Date: 20150917
  Receipt Date: 20171020
  Transmission Date: 20180320
  Serious: Yes (Hospitalization, Other)
  Sender: FDA-Public Use
  Company Number: US-PFIZER INC-2015306039

PATIENT
  Age: 72 Year
  Sex: Female
  Weight: 55.34 kg

DRUGS (18)
  1. LOSARTAN. [Concomitant]
     Active Substance: LOSARTAN
     Indication: SCLERODERMA
     Dosage: 25MG, ONE TABLET, TWICE A DAY
     Route: 048
  2. ATORVASTATIN [Concomitant]
     Active Substance: ATORVASTATIN
     Dosage: 10 MG, 1X/DAY
  3. SERTRALINE [Concomitant]
     Active Substance: SERTRALINE HYDROCHLORIDE
     Indication: SLEEP DISORDER
     Dosage: 50MG, TWO TABLETS AT NIGHT
  4. REVATIO [Suspect]
     Active Substance: SILDENAFIL CITRATE
     Indication: SCLERODERMA
     Dosage: UNK
  5. PENTOXIFYLLINE. [Concomitant]
     Active Substance: PENTOXIFYLLINE
     Indication: SCLERODERMA
     Dosage: 400 MG, 3X/DAY
     Route: 048
  6. PENTOXIFYLLINE. [Concomitant]
     Active Substance: PENTOXIFYLLINE
     Indication: PERIPHERAL VASCULAR DISORDER
  7. LOSARTAN. [Concomitant]
     Active Substance: LOSARTAN
     Indication: PERIPHERAL VASCULAR DISORDER
  8. GABAPENTIN. [Concomitant]
     Active Substance: GABAPENTIN
     Indication: PAIN
     Dosage: 300 MG, 2X/DAY
  9. REVATIO [Suspect]
     Active Substance: SILDENAFIL CITRATE
     Indication: PULMONARY HYPERTENSION
     Dosage: 20 MG, 3X/DAY
     Route: 048
  10. PROMETHAZINE [Concomitant]
     Active Substance: PROMETHAZINE\PROMETHAZINE HYDROCHLORIDE
     Dosage: UNK
  11. CALCIUM [Concomitant]
     Active Substance: CALCIUM
     Indication: OSTEOPOROSIS
     Dosage: 1200MG, ONCE DAILY
     Route: 048
  12. REVATIO [Suspect]
     Active Substance: SILDENAFIL CITRATE
     Indication: PULMONARY FIBROSIS
     Dosage: 20 MG, 3X/DAY (20 MG TABLET, 1 TABLET 3 TIMES A DAY)
     Route: 048
  13. FUROSEMIDE. [Concomitant]
     Active Substance: FUROSEMIDE
     Indication: PERICARDIAL EFFUSION
     Dosage: 20MG, ONE TABLET, DAILY
     Route: 048
  14. PENTOXIFYLLINE. [Concomitant]
     Active Substance: PENTOXIFYLLINE
     Indication: PULMONARY FIBROSIS
     Dosage: 400 MG, 2X/DAY
  15. VITAMIN D [Concomitant]
     Active Substance: CHOLECALCIFEROL
     Indication: OSTEOPOROSIS
     Dosage: 1000MG, ONCE DAILY
     Route: 048
  16. REVATIO [Suspect]
     Active Substance: SILDENAFIL CITRATE
     Indication: INTERSTITIAL LUNG DISEASE
     Dosage: 20 MG, DAILY
     Route: 048
  17. OMEPRAZOLE. [Concomitant]
     Active Substance: OMEPRAZOLE
     Indication: GASTROOESOPHAGEAL REFLUX DISEASE
     Dosage: 400 MG, 3X/DAY
  18. OMEPRAZOLE. [Concomitant]
     Active Substance: OMEPRAZOLE
     Dosage: 20 MG, 2X/DAY
     Route: 048

REACTIONS (10)
  - Pericardial effusion [Unknown]
  - Skin ulcer [Recovering/Resolving]
  - Skin ulcer [Recovering/Resolving]
  - Wound [Recovering/Resolving]
  - Femur fracture [Recovering/Resolving]
  - Fall [Recovering/Resolving]
  - Calcinosis [Recovering/Resolving]
  - Dysphonia [Not Recovered/Not Resolved]
  - Cardiac failure [Unknown]
  - Scleroderma [Unknown]

NARRATIVE: CASE EVENT DATE: 201510
